FAERS Safety Report 14998758 (Version 1)
Quarter: 2018Q2

REPORT INFORMATION
  Report Type: Spontaneous
  Country: NL (occurrence: NL)
  Receive Date: 20180612
  Receipt Date: 20180612
  Transmission Date: 20180711
  Serious: Yes (Hospitalization)
  Sender: FDA-Public Use
  Company Number: NL-TEVA-2018-NL-904112

PATIENT
  Age: 66 Year
  Sex: Female

DRUGS (17)
  1. LITHIUM. [Suspect]
     Active Substance: LITHIUM
     Dosage: 1ST MAR-3RD MAR
     Route: 065
  2. PREDNISONE. [Concomitant]
     Active Substance: PREDNISONE
     Indication: PROTEINURIA
     Dosage: 60 MG; REDUCED TO 30MG AND INCREASED BACK TO 60MG
     Route: 065
  3. FUROSEMIDE. [Concomitant]
     Active Substance: FUROSEMIDE
     Indication: PROTEINURIA
     Dosage: 120 MG
     Route: 065
  4. LITHIUM. [Suspect]
     Active Substance: LITHIUM
     Dosage: DOSE INCREASED TO 400MG ON 4TH FEB AND WITHDRAWN ONE DAY LATER. RE-STARTED ON 24TH FEB
     Route: 065
  5. VALPROIC ACID. [Suspect]
     Active Substance: VALPROIC ACID
     Dosage: CONTINUED UPTO DAY 126 AND DISCONTINUED
     Route: 065
  6. PREDNISONE. [Concomitant]
     Active Substance: PREDNISONE
     Dosage: 30 MG
     Route: 065
  7. VALPROIC ACID. [Suspect]
     Active Substance: VALPROIC ACID
     Dosage: INCREASED TO 1200MG/D ON DAY 21
     Route: 065
  8. VALPROIC ACID. [Suspect]
     Active Substance: VALPROIC ACID
     Dosage: DECREASED TO 3000MG ON DAY 118
     Route: 065
  9. LISINOPRIL. [Concomitant]
     Active Substance: LISINOPRIL
     Indication: PROTEINURIA
     Dosage: 20 MG
     Route: 065
  10. LITHIUM. [Suspect]
     Active Substance: LITHIUM
     Dosage: WITHDRAWN ONE DAY LATER. RE-STARTED ON 24TH FEB-29TH FEB AND INCREASED TO 800MG/D
     Route: 065
  11. VALPROIC ACID. [Suspect]
     Active Substance: VALPROIC ACID
     Dosage: CONTINUED UPTO DAY 77, WHEN IT WAS INCREASED TO 4000MG/D
     Route: 065
  12. LITHIUM. [Suspect]
     Active Substance: LITHIUM
     Indication: BIPOLAR DISORDER
     Dosage: DOSAGE STOPPED AND RE-STARTED AT 200MG/D ON 28TH JAN
     Route: 065
  13. VALPROIC ACID. [Suspect]
     Active Substance: VALPROIC ACID
     Indication: MANIA
     Dosage: ON DAY 1; INCREASED TO 600MG/D ON DAY 15
     Route: 065
  14. VALPROIC ACID. [Suspect]
     Active Substance: VALPROIC ACID
     Dosage: INCREASED TO 2500MG ON DAY 42
     Route: 065
  15. CITALOPRAM [Concomitant]
     Active Substance: CITALOPRAM HYDROBROMIDE
     Indication: BIPOLAR DISORDER
     Dosage: 10 MG; INCREASED TO 20MG ON DAY 197
     Route: 065
  16. CITALOPRAM [Concomitant]
     Active Substance: CITALOPRAM HYDROBROMIDE
     Dosage: 20 MG
     Route: 065
  17. CYCLOPHOSPHAMIDE. [Concomitant]
     Active Substance: CYCLOPHOSPHAMIDE
     Indication: PROTEINURIA
     Dosage: 100 MG
     Route: 065

REACTIONS (13)
  - Seizure [Unknown]
  - Somnolence [Unknown]
  - Cognitive disorder [Recovered/Resolved]
  - Glomerulonephritis membranous [Unknown]
  - Overdose [Recovered/Resolved]
  - Encephalopathy [Unknown]
  - Proteinuria [Unknown]
  - Toxicity to various agents [Unknown]
  - Hypotension [Unknown]
  - Toxicity to various agents [Recovered/Resolved]
  - Nephrotic syndrome [Unknown]
  - Disorientation [Unknown]
  - Delirium [Unknown]
